FAERS Safety Report 6600463-7 (Version None)
Quarter: 2010Q1

REPORT INFORMATION
  Report Type: 
  Country: None (occurrence: None)
  Receive Date: 20100223
  Receipt Date: 20100223
  Transmission Date: 20100710
  Serious: Yes (Other)
  Sender: FDA-Public Use
  Company Number: None

PATIENT
  Age: 53 Year
  Sex: Female
  Weight: 72.5755 kg

DRUGS (2)
  1. LISINOPRIL AND HYDROCHLOROTHIAZIDE [Suspect]
     Indication: HYPERTENSION
     Dosage: 1 TABLET 1 TIME DAY PO
     Route: 048
  2. LISINOPRIL 20 MG TABLETS LUPIN [Suspect]
     Indication: HYPERTENSION
     Dosage: 1 TABLET 1 TIME A DAY PO
     Route: 048

REACTIONS (3)
  - ACTIVITIES OF DAILY LIVING IMPAIRED [None]
  - DISTURBANCE IN SEXUAL AROUSAL [None]
  - MENTAL DISORDER [None]
